FAERS Safety Report 6529161-5 (Version None)
Quarter: 2010Q1

REPORT INFORMATION
  Report Type: 
  Country: None (occurrence: None)
  Receive Date: 20100107
  Receipt Date: 20100104
  Transmission Date: 20100710
  Serious: Yes (Other)
  Sender: FDA-Public Use
  Company Number: US-RB-000107-10

PATIENT
  Age: 45 Year
  Sex: Male

DRUGS (1)
  1. MUCINEX DM [Suspect]
     Route: 048

REACTIONS (1)
  - EPISTAXIS [None]
